FAERS Safety Report 20079797 (Version 8)
Quarter: 2024Q4

REPORT INFORMATION
  Report Type: Report from Study
  Country: AU (occurrence: AU)
  Receive Date: 20211117
  Receipt Date: 20241119
  Transmission Date: 20250114
  Serious: Yes (Hospitalization, Disabling, Other)
  Sender: ROCHE
  Company Number: AU-ROCHE-2953049

PATIENT
  Age: 58 Year
  Sex: Female
  Weight: 90 kg

DRUGS (14)
  1. OCREVUS [Suspect]
     Active Substance: OCRELIZUMAB
     Indication: Relapsing-remitting multiple sclerosis
     Route: 042
     Dates: start: 20180403
  2. OCREVUS [Suspect]
     Active Substance: OCRELIZUMAB
     Route: 042
  3. OCREVUS [Suspect]
     Active Substance: OCRELIZUMAB
     Route: 042
  4. OCREVUS [Suspect]
     Active Substance: OCRELIZUMAB
     Route: 042
     Dates: start: 201811
  5. OCREVUS [Suspect]
     Active Substance: OCRELIZUMAB
     Route: 042
     Dates: start: 2019
  6. BACLOFEN [Concomitant]
     Active Substance: BACLOFEN
     Route: 048
  7. DITROPAN [Concomitant]
     Active Substance: OXYBUTYNIN CHLORIDE
     Dosage: HALF
     Route: 048
  8. ENDEP [Concomitant]
     Active Substance: AMITRIPTYLINE HYDROCHLORIDE
     Route: 048
  9. JARDIANCE [Concomitant]
     Active Substance: EMPAGLIFLOZIN
     Route: 048
  10. PROLIA [Concomitant]
     Active Substance: DENOSUMAB
     Dosage: 60 MG/1 ML
  11. RAMIPRIL [Concomitant]
     Active Substance: RAMIPRIL
     Route: 048
  12. ZOCOR [Concomitant]
     Active Substance: SIMVASTATIN
     Route: 048
  13. ZOLOFT [Concomitant]
     Active Substance: SERTRALINE HYDROCHLORIDE
     Route: 048
  14. AUGMENTIN [Concomitant]
     Active Substance: AMOXICILLIN\CLAVULANATE POTASSIUM

REACTIONS (12)
  - Urinary tract infection [Recovering/Resolving]
  - Vulvovaginal candidiasis [Recovered/Resolved]
  - Synovial cyst [Recovered/Resolved]
  - Device dislocation [Recovered/Resolved]
  - Urinary incontinence [Not Recovered/Not Resolved]
  - Urinary tract infection [Unknown]
  - Escherichia infection [Unknown]
  - Sepsis [Unknown]
  - Urinary tract infection [Not Recovered/Not Resolved]
  - Blister [Recovering/Resolving]
  - Bladder spasm [Recovering/Resolving]
  - Incontinence [Unknown]

NARRATIVE: CASE EVENT DATE: 20211020
